FAERS Safety Report 22315905 (Version 1)
Quarter: 2023Q2

REPORT INFORMATION
  Report Type: Spontaneous
  Country: GB (occurrence: GB)
  Receive Date: 20230512
  Receipt Date: 20230512
  Transmission Date: 20230721
  Serious: Yes (Hospitalization, Other)
  Sender: FDA-Public Use
  Company Number: GB-ANIPHARMA-2023-UK-000165

PATIENT
  Age: 45 Year
  Sex: Female
  Weight: 80 kg

DRUGS (19)
  1. ANASTROZOLE [Suspect]
     Active Substance: ANASTROZOLE
     Indication: Product used for unknown indication
     Route: 048
     Dates: start: 20150616
  2. AMOXICILLIN\CLAVULANATE POTASSIUM [Concomitant]
     Active Substance: AMOXICILLIN\CLAVULANATE POTASSIUM
     Route: 065
  3. BENZYDAMINE HYDROCHLORIDE [Concomitant]
     Active Substance: BENZYDAMINE HYDROCHLORIDE
     Dosage: 15 MG Q6H / DOSE: UNK / DOSE TEXT: TEXT: 60 ML, QD / DOSE TEXT: 15 MG, QID / UNKNOWN DOSE
     Route: 065
     Dates: start: 201508
  4. GENTAMICIN [Concomitant]
     Active Substance: GENTAMICIN
     Route: 065
  5. IBANDRONIC ACID [Concomitant]
     Active Substance: IBANDRONIC ACID
     Route: 048
     Dates: start: 20150518
  6. IRON [Concomitant]
     Active Substance: IRON
     Route: 065
  7. MEROPENEM [Concomitant]
     Active Substance: MEROPENEM
     Route: 065
  8. ACETAMINOPHEN [Concomitant]
     Active Substance: ACETAMINOPHEN
     Route: 065
  9. RAMIPRIL [Concomitant]
     Active Substance: RAMIPRIL
     Route: 065
  10. PIPERACILLIN SODIUM\TAZOBACTAM SODIUM [Concomitant]
     Active Substance: PIPERACILLIN SODIUM\TAZOBACTAM SODIUM
     Route: 065
  11. DOCETAXEL [Suspect]
     Active Substance: DOCETAXEL
     Route: 042
     Dates: start: 20150106, end: 20150424
  12. DENOSUMAB [Concomitant]
     Active Substance: DENOSUMAB
     Dosage: UNK; 120 MG MONTH / DOSE: 120 MG MONTH / DOSE TEXT: 1 EVERY 3 WEEKS; 3 DAYS 2 WEEKS / DOSE TEXT: UNK
     Route: 058
     Dates: start: 20160127
  13. DEXAMETHASONE [Concomitant]
     Active Substance: DEXAMETHASONE
     Route: 048
     Dates: start: 20150803
  14. EXEMESTANE [Suspect]
     Active Substance: EXEMESTANE
     Route: 048
     Dates: start: 20150723
  15. PERTUZUMAB [Suspect]
     Active Substance: PERTUZUMAB
     Dosage: UNK / UNK / DOSE TEXT: ONE CYCLE (LOADING DOSE) / DOSE TEXT: MAINTAINANCE DOSE / 840 MG Q3WK /  DOSE
     Route: 042
     Dates: start: 20151217, end: 20160308
  16. TRASTUZUMAB [Suspect]
     Active Substance: TRASTUZUMAB
     Route: 058
     Dates: start: 20150130, end: 20161003
  17. BISOPROLOL [Concomitant]
     Active Substance: BISOPROLOL
     Route: 065
  18. CALCIUM [Concomitant]
     Active Substance: CALCIUM
     Route: 065
  19. CIPROFLOXACIN [Concomitant]
     Active Substance: CIPROFLOXACIN
     Route: 065

REACTIONS (16)
  - Anaemia [Recovered/Resolved]
  - Ejection fraction decreased [Recovered/Resolved]
  - Osteonecrosis of jaw [Not Recovered/Not Resolved]
  - Epistaxis [Recovered/Resolved]
  - Hot flush [Unknown]
  - Gastrooesophageal reflux disease [Recovered/Resolved]
  - Alopecia [Recovered/Resolved]
  - Rash [Recovered/Resolved]
  - Vascular device infection [Recovered/Resolved]
  - Fatigue [Recovered/Resolved]
  - Lymphoedema [Recovered/Resolved]
  - Gingival swelling [Recovered/Resolved]
  - Influenza like illness [Recovered/Resolved]
  - Mucosal inflammation [Recovered/Resolved]
  - Diarrhoea [Recovered/Resolved]
  - Ejection fraction abnormal [Recovered/Resolved]

NARRATIVE: CASE EVENT DATE: 20150801
